FAERS Safety Report 6003816-3 (Version None)
Quarter: 2008Q4

REPORT INFORMATION
  Report Type: 
  Country: None (occurrence: None)
  Receive Date: 20081216
  Receipt Date: 20081118
  Transmission Date: 20090506
  Serious: No
  Sender: FDA-Public Use
  Company Number: US-BAYER-200834832NA

PATIENT
  Age: 29 Year
  Sex: Female

DRUGS (1)
  1. YAZ [Suspect]
     Indication: CONTRACEPTION
     Route: 048
     Dates: start: 20080401, end: 20080928

REACTIONS (7)
  - ANOREXIA [None]
  - CHLOASMA [None]
  - CONFUSIONAL STATE [None]
  - FEELING ABNORMAL [None]
  - GENITAL HAEMORRHAGE [None]
  - NAUSEA [None]
  - SKIN DISCOLOURATION [None]
